FAERS Safety Report 23628922 (Version 2)
Quarter: 2024Q1

REPORT INFORMATION
  Report Type: Spontaneous
  Country: JP (occurrence: JP)
  Receive Date: 20240313
  Receipt Date: 20240325
  Transmission Date: 20240410
  Serious: Yes (Other)
  Sender: FDA-Public Use
  Company Number: JP-GUERBETG_JAPAN-JP-20240033

PATIENT
  Age: 74 Year
  Sex: Male

DRUGS (2)
  1. LIPIODOL [Suspect]
     Active Substance: ETHIODIZED OIL
     Indication: Therapeutic embolisation
     Dosage: N-BUTYL-2-CYANOACRYLATE (NBCA)/LIPIODOL=1/5
     Route: 013
  2. ENBUCRILATE [Suspect]
     Active Substance: ENBUCRILATE
     Indication: Therapeutic embolisation
     Dosage: N-BUTYL-2-CYANOACRYLATE (NBCA)/LIPIODOL=1/5
     Route: 013

REACTIONS (1)
  - Mesenteric vein thrombosis [Unknown]
